FAERS Safety Report 5618803-4 (Version None)
Quarter: 2008Q1

REPORT INFORMATION
  Report Type: 
  Country: None (occurrence: None)
  Receive Date: 20080207
  Receipt Date: 20080128
  Transmission Date: 20080703
  Serious: Yes (Other)
  Sender: FDA-Public Use
  Company Number: US-PFIZER INC-2008009561

PATIENT
  Sex: Female
  Weight: 77.1 kg

DRUGS (6)
  1. LYRICA [Suspect]
     Indication: SPINAL DISORDER
     Route: 048
  2. METHADONE HCL [Suspect]
     Indication: ROAD TRAFFIC ACCIDENT
  3. PERCOCET [Concomitant]
  4. FLEXERIL [Concomitant]
  5. NAPROXEN SODIUM [Concomitant]
  6. XANAX [Concomitant]

REACTIONS (10)
  - ACTIVITIES OF DAILY LIVING IMPAIRED [None]
  - AMNESIA [None]
  - CRYING [None]
  - FEELING COLD [None]
  - FEELING JITTERY [None]
  - HYPERHIDROSIS [None]
  - NAUSEA [None]
  - NERVOUSNESS [None]
  - OOPHORECTOMY [None]
  - SPINAL OPERATION [None]
